FAERS Safety Report 7100551-5 (Version None)
Quarter: 2010Q4

REPORT INFORMATION
  Report Type: 
  Country: None (occurrence: None)
  Receive Date: 20101113
  Receipt Date: 20100217
  Transmission Date: 20110411
  Serious: No
  Sender: FDA-Public Use
  Company Number: US-ALLERGAN-1002079US

PATIENT
  Age: 42 Year
  Sex: Female

DRUGS (3)
  1. BOTOXA? [Suspect]
     Indication: MIGRAINE
     Dosage: UNK
     Route: 030
     Dates: start: 20090401, end: 20090401
  2. BOTOXA? [Suspect]
     Dosage: UNK
     Route: 030
     Dates: start: 20090601, end: 20090601
  3. BOTOXA? [Suspect]
     Dosage: UNK
     Route: 030
     Dates: start: 20090901, end: 20090901

REACTIONS (1)
  - ACNE CYSTIC [None]
